FAERS Safety Report 19198700 (Version 1)
Quarter: 2021Q2

REPORT INFORMATION
  Report Type: Spontaneous
  Country: NL (occurrence: NL)
  Receive Date: 20210430
  Receipt Date: 20210430
  Transmission Date: 20210717
  Serious: Yes (Other)
  Sender: FDA-Public Use
  Company Number: NL-AUROBINDO-AUR-APL-2021-017806

PATIENT
  Age: 51 Year
  Sex: Female
  Weight: 74 kg

DRUGS (7)
  1. IRINOTECAN CONCENTRATE FOR SOLUTION FOR INFUSION [Suspect]
     Active Substance: IRINOTECAN
     Indication: PRODUCT USED FOR UNKNOWN INDICATION
     Dosage: 600 MILLIGRAM, THREE?WEEKLY SCHEDULE
     Route: 042
  2. IRINOTECAN CONCENTRATE FOR SOLUTION FOR INFUSION [Interacting]
     Active Substance: IRINOTECAN
     Dosage: 300 MILLIGRAM
     Route: 042
  3. VALPROATE SODIUM. [Interacting]
     Active Substance: VALPROATE SODIUM
     Indication: PRODUCT USED FOR UNKNOWN INDICATION
     Dosage: 600 MILLIGRAM, ONCE A DAY (300 MG, 2X/DAY)
     Route: 065
  4. DEXAMETHASONE. [Concomitant]
     Active Substance: DEXAMETHASONE
     Indication: PRODUCT USED FOR UNKNOWN INDICATION
     Dosage: 10 MILLIGRAM
     Route: 065
  5. IRINOTECAN CONCENTRATE FOR SOLUTION FOR INFUSION [Interacting]
     Active Substance: IRINOTECAN
     Dosage: 600 MILLIGRAM
     Route: 042
  6. GRANISETRON [Concomitant]
     Active Substance: GRANISETRON
     Indication: PRODUCT USED FOR UNKNOWN INDICATION
     Dosage: 1 MILLIGRAM
     Route: 065
  7. ATROPINE. [Concomitant]
     Active Substance: ATROPINE
     Indication: CHOLINERGIC SYNDROME
     Dosage: 0.25 MILLIGRAM
     Route: 065

REACTIONS (4)
  - Hepatotoxicity [Unknown]
  - Drug interaction [Unknown]
  - Neutropenia [Unknown]
  - Neuropathy peripheral [Unknown]
